FAERS Safety Report 21530280 (Version 1)
Quarter: 2022Q4

REPORT INFORMATION
  Report Type: Spontaneous
  Country: US (occurrence: None)
  Receive Date: 20221028
  Receipt Date: 20221028
  Transmission Date: 20230112
  Serious: Yes (Disabling)
  Sender: FDA-Public Use
  Company Number: None

PATIENT
  Age: 56 Year
  Sex: Female
  Weight: 70.2 kg

DRUGS (2)
  1. PERFLUTREN [Suspect]
     Active Substance: PERFLUTREN
     Indication: Echocardiogram
  2. AMLODIPINE BESYLATE [Concomitant]
     Active Substance: AMLODIPINE BESYLATE

REACTIONS (4)
  - Ear discomfort [None]
  - Headache [None]
  - Hypoacusis [None]
  - Post procedural complication [None]

NARRATIVE: CASE EVENT DATE: 20221021
